FAERS Safety Report 8511429-4 (Version None)
Quarter: 2012Q3

REPORT INFORMATION
  Report Type: 
  Country: None (occurrence: None)
  Receive Date: 20120716
  Receipt Date: 20120703
  Transmission Date: 20120928
  Serious: Yes (Hospitalization, Other)
  Sender: FDA-Public Use
  Company Number: GB-TEVA-347223ISR

PATIENT
  Sex: Female

DRUGS (5)
  1. TRAMADOL HCL [Concomitant]
     Indication: SPINAL PAIN
  2. GABAPENTIN [Concomitant]
     Indication: SPINAL PAIN
  3. TRAMADOL HCL [Concomitant]
     Indication: NEURALGIA
     Dosage: 200 MILLIGRAM;
     Route: 048
  4. GABAPENTIN [Concomitant]
     Indication: NEURALGIA
     Dosage: 300 MILLIGRAM; NOCTE
     Route: 048
  5. COPAXONE [Suspect]
     Indication: RELAPSING-REMITTING MULTIPLE SCLEROSIS
     Dosage: 20 MILLIGRAM;
     Route: 058
     Dates: start: 20071120

REACTIONS (2)
  - LAPAROTOMY [None]
  - ENDOMETRIAL SARCOMA [None]
